FAERS Safety Report 8068240-0 (Version None)
Quarter: 2012Q1

REPORT INFORMATION
  Report Type: 
  Country: None (occurrence: None)
  Receive Date: 20120124
  Receipt Date: 20110929
  Transmission Date: 20120608
  Serious: No
  Sender: FDA-Public Use
  Company Number: US-AMGEN-USASP2011050460

PATIENT
  Age: 85 Year
  Sex: Female

DRUGS (10)
  1. RANEXA [Concomitant]
  2. ASACOL [Concomitant]
  3. IMDUR [Concomitant]
  4. PRAVASTATIN [Concomitant]
  5. INSULIN (UNKNOWN) [Concomitant]
     Dates: start: 20110929
  6. ATENOLOL [Concomitant]
  7. PLAVIX [Concomitant]
  8. NORVASC [Concomitant]
  9. PROLIA [Suspect]
     Indication: OSTEOPOROSIS POSTMENOPAUSAL
     Dosage: 60 MG, Q6MO
     Route: 058
     Dates: start: 20110101
  10. HUMALOG [Concomitant]
     Dates: end: 20110929

REACTIONS (9)
  - NAIL DISORDER [None]
  - GRIP STRENGTH DECREASED [None]
  - PAIN IN EXTREMITY [None]
  - HYPOAESTHESIA [None]
  - RASH [None]
  - PARAESTHESIA [None]
  - STICKY SKIN [None]
  - SKIN DISORDER [None]
  - FEELING ABNORMAL [None]
